FAERS Safety Report 9716469 (Version 1)
Quarter: 2013Q4

REPORT INFORMATION
  Report Type: Other
  Country: US (occurrence: US)
  Receive Date: 20131127
  Receipt Date: 20131127
  Transmission Date: 20140711
  Serious: No
  Sender: FDA-Public Use
  Company Number: US-ENDO PHARMACEUTICALS INC.-PROP20120031

PATIENT
  Sex: Female

DRUGS (1)
  1. PROPOXYPHENE NAPSYLATE/ACETAMINOPHEN TABLETS [Suspect]
     Indication: PAIN MANAGEMENT
     Dosage: UNKNOWN
     Route: 048
     Dates: start: 1994

REACTIONS (1)
  - Myocardial infarction [Not Recovered/Not Resolved]
